FAERS Safety Report 11891861 (Version 3)
Quarter: 2016Q2

REPORT INFORMATION
  Report Type: Spontaneous
  Country: US (occurrence: US)
  Receive Date: 20160106
  Receipt Date: 20160404
  Transmission Date: 20160815
  Serious: No
  Sender: FDA-Public Use
  Company Number: US-CELGENEUS-USA-2015127179

PATIENT
  Sex: Female

DRUGS (2)
  1. REVLIMID [Suspect]
     Active Substance: LENALIDOMIDE
     Route: 048
     Dates: start: 201601
  2. REVLIMID [Suspect]
     Active Substance: LENALIDOMIDE
     Indication: PLASMA CELL MYELOMA
     Route: 048
     Dates: start: 20151104, end: 20151214

REACTIONS (6)
  - Weight decreased [Unknown]
  - Muscle spasms [Unknown]
  - Dry skin [Recovered/Resolved]
  - Decreased appetite [Unknown]
  - Nausea [Unknown]
  - Gastric disorder [Recovering/Resolving]
